FAERS Safety Report 4399374-X (Version None)
Quarter: 2004Q2

REPORT INFORMATION
  Report Type: 
  Country: None (occurrence: None)
  Receive Date: 20040607
  Receipt Date: 20040330
  Transmission Date: 20050107
  Serious: Yes (Other)
  Sender: FDA-Public Use
  Company Number: US-SHR-04-020953

PATIENT
  Age: 48 Year
  Sex: Male
  Weight: 71.7 kg

DRUGS (10)
  1. CAMPATH [Suspect]
     Indication: CHRONIC LYMPHOCYTIC LEUKAEMIA
     Dosage: 3 MG, 1 DOSE; SUBCUTANEOUS (SEE IMAGE)
     Route: 058
     Dates: start: 20031215, end: 20031215
  2. CAMPATH [Suspect]
     Indication: CHRONIC LYMPHOCYTIC LEUKAEMIA
     Dosage: 3 MG, 1 DOSE; SUBCUTANEOUS (SEE IMAGE)
     Route: 058
     Dates: start: 20031216, end: 20031216
  3. CAMPATH [Suspect]
     Indication: CHRONIC LYMPHOCYTIC LEUKAEMIA
     Dosage: 3 MG, 1 DOSE; SUBCUTANEOUS (SEE IMAGE)
     Route: 058
     Dates: start: 20031217, end: 20040112
  4. CAMPATH [Suspect]
     Indication: CHRONIC LYMPHOCYTIC LEUKAEMIA
     Dosage: 3 MG, 1 DOSE; SUBCUTANEOUS (SEE IMAGE)
     Route: 058
     Dates: start: 20040204
  5. LEUKINE [Suspect]
     Indication: DRUG USE FOR UNKNOWN INDICATION
     Dosage: UNK, UNK, UNKNOWN
     Route: 065
     Dates: start: 20031201
  6. DIPHENHYDRAMINE [Concomitant]
  7. TYLENOL [Concomitant]
  8. BACTRIM [Concomitant]
  9. ACYCLOVIR [Concomitant]
  10. DIFLUCAN [Concomitant]

REACTIONS (4)
  - CHILLS [None]
  - CYTOMEGALOVIRUS INFECTION [None]
  - NIGHT SWEATS [None]
  - PYREXIA [None]
